FAERS Safety Report 23227731 (Version 1)
Quarter: 2023Q4

REPORT INFORMATION
  Report Type: Report from Study
  Country: US (occurrence: US)
  Receive Date: 20231125
  Receipt Date: 20231125
  Transmission Date: 20240110
  Serious: Yes (Other)
  Sender: FDA-Public Use
  Company Number: US-ABBVIE-5429842

PATIENT
  Sex: Female

DRUGS (2)
  1. HUMIRA [Suspect]
     Active Substance: ADALIMUMAB
     Indication: Rheumatoid arthritis
     Dosage: FORM STRENGTH: 40 MG?CITRATE FREE?LAST ADMIN DATE: 2023
     Route: 058
     Dates: start: 20230629
  2. HUMIRA [Suspect]
     Active Substance: ADALIMUMAB
     Dosage: FORM STRENGTH: 40 MG?CITRATE FREE
     Route: 058
     Dates: start: 20230801

REACTIONS (9)
  - Oral surgery [Unknown]
  - Headache [Unknown]
  - Diarrhoea [Unknown]
  - Tooth fracture [Unknown]
  - Tooth infection [Unknown]
  - Seasonal allergy [Unknown]
  - Flatulence [Unknown]
  - Stress [Unknown]
  - Eructation [Unknown]

NARRATIVE: CASE EVENT DATE: 20230101
